FAERS Safety Report 4802781-1 (Version None)
Quarter: 2005Q4

REPORT INFORMATION
  Report Type: 
  Country: None (occurrence: None)
  Receive Date: 20051017
  Receipt Date: 20051017
  Transmission Date: 20060501
  Serious: Yes (Hospitalization)
  Sender: FDA-Public Use
  Company Number: None

PATIENT
  Sex: Female
  Weight: 52.2 kg

DRUGS (2)
  1. QUININE [Suspect]
     Dosage: 325MG QDAY PO
     Route: 048
     Dates: start: 20050819, end: 20050826
  2. ZOSYN [Concomitant]

REACTIONS (1)
  - THROMBOCYTOPENIA [None]
